FAERS Safety Report 15243058 (Version 1)
Quarter: 2018Q3

REPORT INFORMATION
  Report Type: Spontaneous
  Country: US (occurrence: US)
  Receive Date: 20180806
  Receipt Date: 20180806
  Transmission Date: 20181010
  Serious: Yes (Other)
  Sender: FDA-Public Use
  Company Number: US-BAYER-2018-141934

PATIENT

DRUGS (1)
  1. COPPERTONE WET N CLEAR SPF 30 [Suspect]
     Active Substance: AVOBENZONE\HOMOSALATE\OCTISALATE\OCTOCRYLENE\OXYBENZONE
     Dosage: UNK
     Route: 061

REACTIONS (4)
  - Chemical burn of skin [Unknown]
  - Chemical burns of eye [Unknown]
  - Accidental exposure to product [Unknown]
  - Liquid product physical issue [Unknown]
